FAERS Safety Report 12456522 (Version 1)
Quarter: 2016Q2

REPORT INFORMATION
  Report Type: Spontaneous
  Country: US (occurrence: US)
  Receive Date: 20160610
  Receipt Date: 20160610
  Transmission Date: 20160815
  Serious: No
  Sender: FDA-Public Use
  Company Number: US-BAYER-2016-113206

PATIENT
  Age: 44 Year
  Sex: Female
  Weight: 68.27 kg

DRUGS (2)
  1. CLARITIN [Suspect]
     Active Substance: LORATADINE
     Indication: LACRIMATION INCREASED
  2. CLARITIN [Suspect]
     Active Substance: LORATADINE
     Indication: EYE PRURITUS
     Dosage: 1 DF, ONCE
     Dates: start: 20160608, end: 20160608

REACTIONS (8)
  - Rhinorrhoea [Not Recovered/Not Resolved]
  - Nausea [Not Recovered/Not Resolved]
  - Feeling hot [Not Recovered/Not Resolved]
  - Feeling abnormal [Not Recovered/Not Resolved]
  - Product use issue [None]
  - Nasal congestion [Not Recovered/Not Resolved]
  - Feeling drunk [Not Recovered/Not Resolved]
  - Fatigue [Not Recovered/Not Resolved]

NARRATIVE: CASE EVENT DATE: 20160608
